FAERS Safety Report 10340395 (Version 1)
Quarter: 2014Q3

REPORT INFORMATION
  Report Type: Spontaneous
  Country: US (occurrence: US)
  Receive Date: 20140724
  Receipt Date: 20140724
  Transmission Date: 20150326
  Serious: Yes (Death, Disabling, Other)
  Sender: FDA-Public Use
  Company Number: US-TEVA-495847USA

PATIENT
  Age: 66 Year
  Sex: Male

DRUGS (1)
  1. AMIODARONE [Suspect]
     Active Substance: AMIODARONE
     Indication: ATRIAL FIBRILLATION

REACTIONS (23)
  - Lung disorder [Fatal]
  - Irritability [Unknown]
  - Cachexia [Unknown]
  - Pulmonary oedema [Fatal]
  - Wheezing [Unknown]
  - Nervousness [Unknown]
  - Respiratory failure [Unknown]
  - Impaired healing [Unknown]
  - Lung infiltration [Unknown]
  - Dyspnoea [Unknown]
  - Restlessness [Unknown]
  - Disturbance in attention [Unknown]
  - Cough [Unknown]
  - Depression [Unknown]
  - Fatigue [Unknown]
  - Asthenia [Unknown]
  - Pulmonary toxicity [Fatal]
  - Lung disorder [Unknown]
  - Haemoptysis [Unknown]
  - Facial wasting [Unknown]
  - Asphyxia [Fatal]
  - Productive cough [Unknown]
  - Pallor [Unknown]

NARRATIVE: CASE EVENT DATE: 201005
